FAERS Safety Report 4983057-9 (Version None)
Quarter: 2006Q2

REPORT INFORMATION
  Report Type: 
  Country: None (occurrence: None)
  Receive Date: 20060426
  Receipt Date: 20060424
  Transmission Date: 20061013
  Serious: Yes (Life-Threatening)
  Sender: FDA-Public Use
  Company Number: PHRM2006FR01400

PATIENT
  Age: 80 Year
  Sex: Male

DRUGS (4)
  1. EXELON [Suspect]
     Dosage: 6 MG, BID
     Route: 048
     Dates: start: 20041231, end: 20060228
  2. ALDACTAZINE [Suspect]
     Dosage: 1 DF, QD
     Route: 048
     Dates: end: 20060228
  3. EQUANIL [Suspect]
     Dosage: 600 MG, QD
     Route: 048
     Dates: end: 20060228
  4. MEPRONIZINE [Suspect]
     Dosage: 1 DF, QD
     Route: 048
     Dates: end: 20060228

REACTIONS (4)
  - ATRIAL FIBRILLATION [None]
  - BLOOD PRESSURE SYSTOLIC DECREASED [None]
  - CIRCULATORY COLLAPSE [None]
  - MALAISE [None]
